FAERS Safety Report 16159079 (Version 3)
Quarter: 2019Q2

REPORT INFORMATION
  Report Type: Report from Study
  Country: CO (occurrence: CO)
  Receive Date: 20190404
  Receipt Date: 20190531
  Transmission Date: 20190711
  Serious: Yes (Hospitalization)
  Sender: FDA-Public Use
  Company Number: CO-SA-2019SA090561

PATIENT
  Age: 65 Year
  Sex: Male

DRUGS (8)
  1. LANTUS [Suspect]
     Active Substance: INSULIN GLARGINE
     Indication: TYPE 2 DIABETES MELLITUS
     Dosage: 30 IU, QD
     Route: 058
     Dates: start: 201107
  2. ATORVASTATIN [Concomitant]
     Active Substance: ATORVASTATIN
  3. INSULIN GLULISINE [Suspect]
     Active Substance: INSULIN GLULISINE
     Indication: TYPE 2 DIABETES MELLITUS
     Dosage: 6 IU, TID
     Route: 058
     Dates: start: 201107
  4. SPIRONOLACTONE. [Concomitant]
     Active Substance: SPIRONOLACTONE
  5. CARVEDILOL. [Concomitant]
     Active Substance: CARVEDILOL
  6. CLOPIDOGREL [Concomitant]
     Active Substance: CLOPIDOGREL BISULFATE
  7. SALICYLIC ACID. [Concomitant]
     Active Substance: SALICYLIC ACID
  8. FUROSEMIDE [FUROSEMIDE SODIUM] [Concomitant]

REACTIONS (8)
  - Gait disturbance [Recovering/Resolving]
  - Thermal burn [Recovering/Resolving]
  - Acute myocardial infarction [Recovered/Resolved]
  - Skin odour abnormal [Recovered/Resolved]
  - Pain in extremity [Unknown]
  - Extremity necrosis [Recovering/Resolving]
  - Arterial occlusive disease [Recovered/Resolved]
  - Wound complication [Recovering/Resolving]

NARRATIVE: CASE EVENT DATE: 20190113
